FAERS Safety Report 6899603-4 (Version None)
Quarter: 2010Q3

REPORT INFORMATION
  Report Type: 
  Country: None (occurrence: None)
  Receive Date: 20100729
  Receipt Date: 20100712
  Transmission Date: 20110219
  Serious: Yes (Other)
  Sender: FDA-Public Use
  Company Number: 2010P1000288

PATIENT
  Age: 66 Year
  Sex: Female
  Weight: 68.0396 kg

DRUGS (9)
  1. LAMOTRIGINE [Suspect]
     Indication: DEPRESSION
     Dosage: QD;PO
     Route: 048
     Dates: start: 20091101
  2. LAMOTRIGINE [Suspect]
     Indication: DEPRESSION
     Dosage: QD;PO
     Route: 048
     Dates: start: 20091101
  3. FLUVOXAMINE MALEATE [Concomitant]
  4. PROZAC [Concomitant]
  5. LISINOPRIL [Concomitant]
  6. PRAVASTATIN [Concomitant]
  7. LEVOTHYROXINE [Concomitant]
  8. MULTI-VITAMIN [Concomitant]
  9. VITAMIN D/CALCIUM [Concomitant]

REACTIONS (6)
  - BALANCE DISORDER [None]
  - CATARACT [None]
  - COUGH [None]
  - DYSARTHRIA [None]
  - HYPOACUSIS [None]
  - SPEECH DISORDER [None]
